FAERS Safety Report 6992105-6 (Version None)
Quarter: 2010Q3

REPORT INFORMATION
  Report Type: 
  Country: None (occurrence: None)
  Receive Date: 20100915
  Receipt Date: 20100915
  Transmission Date: 20110219
  Serious: No
  Sender: FDA-Public Use
  Company Number: None

PATIENT
  Age: 32 Year
  Sex: Female
  Weight: 89.3586 kg

DRUGS (1)
  1. SERTRALINE HYDROCHLORIDE [Suspect]
     Indication: DEPRESSION
     Dosage: ONE TABLET 50MG DAILY PO
     Route: 048
     Dates: start: 20100803, end: 20100910

REACTIONS (2)
  - DRUG INEFFECTIVE [None]
  - PRODUCT MEASURED POTENCY ISSUE [None]
